FAERS Safety Report 24595978 (Version 1)
Quarter: 2024Q4

REPORT INFORMATION
  Report Type: Spontaneous
  Country: US (occurrence: US)
  Receive Date: 20241109
  Receipt Date: 20241109
  Transmission Date: 20250115
  Serious: Yes (Disabling)
  Sender: ABBVIE
  Company Number: US-ABBVIE-5988799

PATIENT

DRUGS (1)
  1. ARMOUR THYROID [Suspect]
     Active Substance: THYROID, PORCINE
     Indication: Hypothyroidism
     Route: 048

REACTIONS (3)
  - Disability [Not Recovered/Not Resolved]
  - Autoimmune thyroiditis [Unknown]
  - Post-acute COVID-19 syndrome [Unknown]
